FAERS Safety Report 25972169 (Version 1)
Quarter: 2025Q4

REPORT INFORMATION
  Report Type: Spontaneous
  Country: US (occurrence: US)
  Receive Date: 20251029
  Receipt Date: 20251029
  Transmission Date: 20260117
  Serious: Yes (Hospitalization, Other)
  Sender: STRIDES
  Company Number: US-STRIDES ARCOLAB LIMITED-2025SP013321

PATIENT
  Age: 75 Year
  Sex: Female

DRUGS (2)
  1. SERTRALINE HYDROCHLORIDE [Suspect]
     Active Substance: SERTRALINE HYDROCHLORIDE
     Indication: Depression
     Dosage: 150 MILLIGRAM, QD
     Route: 065
  2. ATORVASTATIN [Concomitant]
     Active Substance: ATORVASTATIN
     Indication: Hyperlipidaemia
     Dosage: 40 MILLIGRAM
     Route: 065

REACTIONS (6)
  - Multiple acyl-coenzyme A dehydrogenase deficiency [Recovering/Resolving]
  - Spinal stenosis [Recovering/Resolving]
  - Dropped head syndrome [Recovering/Resolving]
  - Progressive facial hemiatrophy [Recovering/Resolving]
  - Quadriparesis [Recovering/Resolving]
  - Myopathy [Recovering/Resolving]
